FAERS Safety Report 5279946-0 (Version None)
Quarter: 2007Q1

REPORT INFORMATION
  Report Type: 
  Country: None (occurrence: None)
  Receive Date: 20070327
  Receipt Date: 20070327
  Transmission Date: 20070707
  Serious: Yes (Hospitalization)
  Sender: FDA-Public Use
  Company Number: None

PATIENT
  Sex: Female

DRUGS (1)
  1. REVLIMID [Suspect]
     Indication: MULTIPLE MYELOMA
     Dosage: 10MG DAILY FOR 28 DAYS PO
     Route: 048

REACTIONS (6)
  - ANOREXIA [None]
  - DEHYDRATION [None]
  - DYSURIA [None]
  - FATIGUE [None]
  - PATHOGEN RESISTANCE [None]
  - URINARY TRACT INFECTION [None]
